FAERS Safety Report 5226822-5 (Version None)
Quarter: 2007Q1

REPORT INFORMATION
  Report Type: 
  Country: None (occurrence: None)
  Receive Date: 20070130
  Receipt Date: 20070115
  Transmission Date: 20070707
  Serious: Yes (Other)
  Sender: FDA-Public Use
  Company Number: 234325

PATIENT
  Age: 71 Year
  Sex: Female
  Weight: 70 kg

DRUGS (3)
  1. HERCEPTIN [Suspect]
     Indication: BREAST CANCER
     Dosage: 1/WEEK, INTRAVENOUS
     Route: 042
     Dates: start: 20050311, end: 20060929
  2. PACLITAXEL [Suspect]
     Indication: BREAST CANCER METASTATIC
     Dosage: 100 MG, 1/WEEK,
     Dates: start: 20050715, end: 20060120
  3. XELODA [Concomitant]

REACTIONS (5)
  - ALANINE AMINOTRANSFERASE INCREASED [None]
  - ASPARTATE AMINOTRANSFERASE INCREASED [None]
  - HYPOAESTHESIA [None]
  - METASTASES TO LYMPH NODES [None]
  - PLATELET COUNT DECREASED [None]
